FAERS Safety Report 4341452-5 (Version None)
Quarter: 2004Q2

REPORT INFORMATION
  Report Type: 
  Country: None (occurrence: None)
  Receive Date: 20040419
  Receipt Date: 20040413
  Transmission Date: 20050107
  Serious: Yes (Life-Threatening, Hospitalization)
  Sender: FDA-Public Use
  Company Number: 7811

PATIENT
  Age: 85 Year
  Sex: Female

DRUGS (5)
  1. AMIODARONE HCL [Suspect]
     Indication: VENTRICULAR TACHYCARDIA
     Dosage: 200 MG FREQ UNK; PO
     Route: 048
     Dates: start: 20030801, end: 20040315
  2. FUROSEMIDE [Concomitant]
  3. BISOPROLOL [Concomitant]
  4. ATORVASTATIN [Concomitant]
  5. HYPERCHOLESTEROLAEMIA [Concomitant]

REACTIONS (2)
  - ATRIOVENTRICULAR BLOCK COMPLETE [None]
  - HYPOTHYROIDISM [None]
